FAERS Safety Report 9661304 (Version 2)
Quarter: 2014Q1

REPORT INFORMATION
  Report Type: Report from Study
  Country: CA (occurrence: CA)
  Receive Date: 20131031
  Receipt Date: 20140317
  Transmission Date: 20141002
  Serious: Yes (Other)
  Sender: FDA-Public Use
  Company Number: CA-UCBSA-101802

PATIENT
  Age: 65 Year
  Sex: Female
  Weight: 85.7 kg

DRUGS (1)
  1. CIMZIA [Suspect]
     Indication: RHEUMATOID ARTHRITIS
     Route: 058
     Dates: start: 20130207, end: 2013

REACTIONS (2)
  - Incision site infection [Not Recovered/Not Resolved]
  - Hip arthroplasty [Unknown]
